FAERS Safety Report 15496212 (Version 3)
Quarter: 2018Q4

REPORT INFORMATION
  Report Type: Spontaneous
  Country: CA (occurrence: CA)
  Receive Date: 20181012
  Receipt Date: 20181213
  Transmission Date: 20190205
  Serious: Yes (Hospitalization)
  Sender: FDA-Public Use
  Company Number: CA-PFIZER INC-2018388388

PATIENT
  Age: 35 Year
  Sex: Female

DRUGS (9)
  1. SULFASALAZINE. [Suspect]
     Active Substance: SULFASALAZINE
     Dosage: UNK
     Route: 048
     Dates: start: 20180823
  2. ALESSE 28 [Concomitant]
     Active Substance: ETHINYL ESTRADIOL\LEVONORGESTREL
     Dosage: UNK
  3. INFLECTRA [Suspect]
     Active Substance: INFLIXIMAB-DYYB
     Dosage: 10 MG/KG (OR 700MG), (Q 2 WEEKS THEN EVERY 8 WEEKS)
     Route: 042
     Dates: start: 20180827
  4. INFLECTRA [Suspect]
     Active Substance: INFLIXIMAB-DYYB
     Indication: COLITIS ULCERATIVE
     Dosage: 10 MG/KG (OR 700MG), (Q 2 WEEKS THEN EVERY 8 WEEKS)
     Route: 042
     Dates: start: 20180819
  5. INFLECTRA [Suspect]
     Active Substance: INFLIXIMAB-DYYB
     Dosage: 10 MG/KG (OR 700MG), (EVERY 2 WEEKS THEN EVERY 8 WEEKS)
     Route: 042
     Dates: start: 20181130
  6. PREDNISONE. [Concomitant]
     Active Substance: PREDNISONE
     Dosage: 40MG-0MG TAPER
  7. INFLECTRA [Suspect]
     Active Substance: INFLIXIMAB-DYYB
     Dosage: 10 MG/KG (OR 700MG), CYCLIC (Q 2 WEEKS THEN EVERY 8 WEEKS)
     Route: 042
     Dates: start: 20180827
  8. INFLECTRA [Suspect]
     Active Substance: INFLIXIMAB-DYYB
     Dosage: 10 MG/KG (OR 700MG), (EVERY 2 WEEKS THEN EVERY 8 WEEKS)
     Route: 042
     Dates: start: 20181002
  9. SYNTHROID [Concomitant]
     Active Substance: LEVOTHYROXINE SODIUM
     Dosage: UNK

REACTIONS (2)
  - Condition aggravated [Unknown]
  - Inappropriate schedule of product administration [Unknown]
